FAERS Safety Report 8820029 (Version 1)
Quarter: 2012Q4

REPORT INFORMATION
  Report Type: 
  Country: DE (occurrence: DE)
  Receive Date: 20121001
  Receipt Date: 20121001
  Transmission Date: 20130627
  Serious: Yes (Hospitalization)
  Sender: FDA-Public Use
  Company Number: DE-ELI_LILLY_AND_COMPANY-DE201209005124

PATIENT
  Age: 47 Year
  Sex: Male

DRUGS (2)
  1. ZYPREXA [Suspect]
     Dosage: 2.5 mg, each morning
     Route: 048
     Dates: end: 20120910
  2. ZYPREXA [Suspect]
     Dosage: 10 mg, each evening
     Dates: end: 20120910

REACTIONS (1)
  - Atrioventricular block second degree [Not Recovered/Not Resolved]
